FAERS Safety Report 8762758 (Version 2)
Quarter: 2012Q4

REPORT INFORMATION
  Report Type: 
  Country: BR (occurrence: BR)
  Receive Date: 20120828
  Receipt Date: 20120921
  Transmission Date: 20130627
  Serious: Yes (Hospitalization)
  Sender: FDA-Public Use
  Company Number: BR-PFIZER INC-2012207530

PATIENT
  Age: 26 Year
  Sex: Female

DRUGS (2)
  1. LYRICA [Suspect]
     Dosage: 75 mg (one capsule), 1x/day
     Route: 048
     Dates: start: 20120424, end: 201205
  2. BROMAZEPAM [Concomitant]
     Indication: INSOMNIA
     Dosage: UNK

REACTIONS (1)
  - Pain [Unknown]
